FAERS Safety Report 8114448-5 (Version None)
Quarter: 2012Q1

REPORT INFORMATION
  Report Type: 
  Country: None (occurrence: None)
  Receive Date: 20120206
  Receipt Date: 20120131
  Transmission Date: 20120608
  Serious: No
  Sender: FDA-Public Use
  Company Number: US-BIOGENIDEC-2012BI003915

PATIENT
  Sex: Female

DRUGS (1)
  1. TYSABRI [Suspect]
     Indication: MULTIPLE SCLEROSIS
     Route: 042
     Dates: start: 20070531

REACTIONS (5)
  - GAIT DISTURBANCE [None]
  - MOBILITY DECREASED [None]
  - FATIGUE [None]
  - HOT FLUSH [None]
  - CHILLS [None]
